FAERS Safety Report 9261728 (Version 3)
Quarter: 2013Q2

REPORT INFORMATION
  Report Type: Spontaneous
  Country: DE (occurrence: DE)
  Receive Date: 20130429
  Receipt Date: 20130611
  Transmission Date: 20140414
  Serious: Yes (Other)
  Sender: FDA-Public Use
  Company Number: DE-NAPPMUNDI-DEU-2013-0011312

PATIENT
  Age: 50 Year
  Sex: Female

DRUGS (8)
  1. PALLADON RETARD [Suspect]
     Indication: COMPLEX REGIONAL PAIN SYNDROME
     Dosage: 20 MG, DAILY
     Route: 048
  2. PALLADON RETARD [Suspect]
     Indication: PAIN
     Dosage: 28 MG, DAILY
     Route: 048
  3. PALLADON RETARD [Suspect]
     Dosage: 8 MG, TID
     Route: 048
     Dates: start: 201008
  4. PREGABALIN [Suspect]
     Indication: PRODUCT USED FOR UNKNOWN INDICATION
     Dosage: 150 MG, BID
     Route: 065
  5. AMITRIPTYLIN [Suspect]
     Indication: PRODUCT USED FOR UNKNOWN INDICATION
     Dosage: 50 MG, DAILY
     Route: 065
  6. SORMODREN [Suspect]
     Indication: HYPERHIDROSIS
     Route: 065
  7. THYRONAJOD [Concomitant]
     Indication: THYROID DISORDER
     Dosage: 100 UNK, UNK
     Route: 065
  8. VITAMIN B12                        /00056201/ [Concomitant]
     Indication: VITAMIN B12 DEFICIENCY
     Route: 042

REACTIONS (7)
  - Dental caries [Unknown]
  - Tooth loss [Unknown]
  - Oedema [Unknown]
  - Urinary incontinence [Unknown]
  - Loss of libido [Unknown]
  - Dry mouth [Unknown]
  - Oedema peripheral [Unknown]
